FAERS Safety Report 5501418-6 (Version None)
Quarter: 2007Q3

REPORT INFORMATION
  Report Type: 
  Country: None (occurrence: None)
  Receive Date: 20070924
  Receipt Date: 20070924
  Transmission Date: 20080115
  Serious: No
  Sender: FDA-Public Use
  Company Number: None

PATIENT
  Sex: Female
  Weight: 43.06 kg

DRUGS (1)
  1. AQUADEKS SOFTGEL CAPSULE - ONE - AXCAN PHARMA INC [Suspect]
     Indication: CYSTIC FIBROSIS
     Dosage: ONE CAPSULE TWICE DAILY ORAL
     Route: 048
     Dates: start: 20070905

REACTIONS (5)
  - ARTHRALGIA [None]
  - FLUSHING [None]
  - JOINT SWELLING [None]
  - LIP SWELLING [None]
  - PARAESTHESIA ORAL [None]
